FAERS Safety Report 7082039 (Version 51)
Quarter: 2016Q4

REPORT INFORMATION
  Report Type: Report from Study
  Country: CA (occurrence: CA)
  Receive Date: 20090814
  Receipt Date: 20161216
  Transmission Date: 20170207
  Serious: Yes (Hospitalization, Other)
  Sender: FDA-Public Use
  Company Number: PHHY2009CA31663

PATIENT
  Age: 71 Year
  Sex: Female

DRUGS (38)
  1. SANDOSTATIN LAR DEPOT [Suspect]
     Active Substance: OCTREOTIDE ACETATE
     Indication: CARCINOID TUMOUR OF THE SMALL BOWEL
     Dosage: 30 MG, QMO
     Route: 030
     Dates: start: 20090915
  2. MORPHINE [Concomitant]
     Active Substance: MORPHINE
     Indication: PRODUCT USED FOR UNKNOWN INDICATION
     Dosage: 30 MG, BID
     Route: 065
  3. MORPHINE [Concomitant]
     Active Substance: MORPHINE
     Dosage: 15 MG, BID
     Route: 065
  4. LIPITOR [Concomitant]
     Active Substance: ATORVASTATIN CALCIUM
     Indication: PRODUCT USED FOR UNKNOWN INDICATION
     Dosage: 40 MG, QD
     Route: 065
  5. SANDOSTATIN LAR DEPOT [Suspect]
     Active Substance: OCTREOTIDE ACETATE
     Dosage: 30 MG, BIW, EVERY TWO WEEKS
     Route: 030
     Dates: start: 20110603
  6. SANDOSTATIN LAR DEPOT [Suspect]
     Active Substance: OCTREOTIDE ACETATE
     Dosage: 30 MG, QMO
     Route: 030
     Dates: start: 20111024
  7. AFINITOR [Suspect]
     Active Substance: EVEROLIMUS
     Dosage: 5 MG, QD
     Route: 048
  8. IRBESARTAN. [Concomitant]
     Active Substance: IRBESARTAN
     Indication: PRODUCT USED FOR UNKNOWN INDICATION
     Route: 065
  9. SANDOSTATIN LAR DEPOT [Suspect]
     Active Substance: OCTREOTIDE ACETATE
     Indication: NEUROENDOCRINE TUMOUR
     Dosage: 20 MG, QMO
     Route: 030
     Dates: start: 20090815
  10. SANDOSTATIN LAR DEPOT [Suspect]
     Active Substance: OCTREOTIDE ACETATE
     Dosage: 30 MG, TIW
     Route: 030
     Dates: start: 20140130
  11. AFINITOR [Suspect]
     Active Substance: EVEROLIMUS
     Dosage: 10 MG, QD
     Route: 048
  12. MORPHINE [Concomitant]
     Active Substance: MORPHINE
     Dosage: 30 MG, QID
     Route: 065
  13. MIRTAZAPINE. [Concomitant]
     Active Substance: MIRTAZAPINE
     Indication: PRODUCT USED FOR UNKNOWN INDICATION
     Dosage: 15 MG, QHS
     Route: 065
  14. RATIO-MORPHINE [Concomitant]
     Indication: PRODUCT USED FOR UNKNOWN INDICATION
     Dosage: 15 MG, BID
     Route: 065
  15. SANDOSTATIN LAR DEPOT [Suspect]
     Active Substance: OCTREOTIDE ACETATE
     Dosage: 30 MG, EVERY 02 WEEKS
     Route: 030
     Dates: start: 20100316
  16. SANDOSTATIN LAR DEPOT [Suspect]
     Active Substance: OCTREOTIDE ACETATE
     Dosage: 30 MG, QMO
     Route: 030
     Dates: start: 20100921
  17. SANDOSTATIN LAR DEPOT [Suspect]
     Active Substance: OCTREOTIDE ACETATE
     Dosage: 30 MG, BIW
     Route: 030
     Dates: start: 20111022
  18. SANDOSTATIN LAR DEPOT [Suspect]
     Active Substance: OCTREOTIDE ACETATE
     Dosage: 30 MG, BIW
     Route: 030
     Dates: start: 20140408
  19. NOVO-ATENOL [Concomitant]
     Indication: PRODUCT USED FOR UNKNOWN INDICATION
     Dosage: 25 MG
     Route: 065
  20. FUROSEMIDE. [Concomitant]
     Active Substance: FUROSEMIDE
     Indication: PRODUCT USED FOR UNKNOWN INDICATION
     Route: 065
  21. CARBOCAL D [Concomitant]
     Active Substance: CALCIUM\VITAMIN D
     Indication: PRODUCT USED FOR UNKNOWN INDICATION
     Dosage: 500 MG, BID
     Route: 065
  22. SANDOSTATIN LAR DEPOT [Suspect]
     Active Substance: OCTREOTIDE ACETATE
     Dosage: 20 MG, QMO
     Route: 030
     Dates: start: 20100614
  23. PREGABALINE [Concomitant]
     Active Substance: PREGABALIN
     Indication: PRODUCT USED FOR UNKNOWN INDICATION
     Dosage: UNK
     Route: 065
  24. SANDOSTATIN LAR DEPOT [Suspect]
     Active Substance: OCTREOTIDE ACETATE
     Dosage: 20 MG, EVERY 02 WEEKS
     Route: 030
     Dates: start: 20100505
  25. SANDOSTATIN LAR DEPOT [Suspect]
     Active Substance: OCTREOTIDE ACETATE
     Dosage: 30 MG, QMO
     Route: 030
     Dates: start: 20130211
  26. AFINITOR [Suspect]
     Active Substance: EVEROLIMUS
     Dosage: 7.5 MG, QD
     Route: 048
  27. LYRICA [Concomitant]
     Active Substance: PREGABALIN
     Indication: PRODUCT USED FOR UNKNOWN INDICATION
     Route: 065
  28. PANTOLOC//PANTOPRAZOLE SODIUM SESQUIHYDRATE [Concomitant]
     Active Substance: PANTOPRAZOLE SODIUM
     Indication: PRODUCT USED FOR UNKNOWN INDICATION
     Dosage: 40 MG, QD
     Route: 065
  29. MAGNESIUM [Concomitant]
     Active Substance: MAGNESIUM
     Indication: PRODUCT USED FOR UNKNOWN INDICATION
     Route: 065
  30. SANDOSTATIN LAR DEPOT [Suspect]
     Active Substance: OCTREOTIDE ACETATE
     Dosage: 30 MG, QMO
     Route: 030
     Dates: start: 20130211
  31. AFINITOR [Suspect]
     Active Substance: EVEROLIMUS
     Indication: NEUROENDOCRINE TUMOUR
     Dosage: 2.5 MG, QD
     Route: 048
     Dates: start: 201409
  32. SYNTHROID [Concomitant]
     Active Substance: LEVOTHYROXINE SODIUM
     Indication: PRODUCT USED FOR UNKNOWN INDICATION
     Route: 065
  33. PANTOLOC//PANTOPRAZOLE SODIUM SESQUIHYDRATE [Concomitant]
     Active Substance: PANTOPRAZOLE SODIUM
     Indication: PRODUCT USED FOR UNKNOWN INDICATION
     Dosage: 40 MG, QD
     Route: 065
  34. CLONAZEPAN [Concomitant]
     Active Substance: CLONAZEPAM
     Indication: PRODUCT USED FOR UNKNOWN INDICATION
     Dosage: 0.5 MG, QHS
     Route: 065
  35. NORVASC [Concomitant]
     Active Substance: AMLODIPINE BESYLATE
     Indication: PRODUCT USED FOR UNKNOWN INDICATION
     Dosage: 2.5 MG, QD
     Route: 065
  36. NOVO-ALENDRONATE [Concomitant]
     Active Substance: ALENDRONIC ACID
     Indication: PRODUCT USED FOR UNKNOWN INDICATION
     Dosage: 1 DF (1 INJ/WEEK)
     Route: 065
  37. ESCITALOPRAM [Concomitant]
     Active Substance: ESCITALOPRAM OXALATE
     Indication: PRODUCT USED FOR UNKNOWN INDICATION
     Dosage: 5 MG (10 MG HALF TABLET), QD
     Route: 065
  38. BISOPROLOL [Concomitant]
     Active Substance: BISOPROLOL
     Indication: PRODUCT USED FOR UNKNOWN INDICATION
     Route: 065

REACTIONS (92)
  - Nodule [Not Recovered/Not Resolved]
  - Blood pressure decreased [Recovered/Resolved]
  - Fatigue [Not Recovered/Not Resolved]
  - Dyspnoea exertional [Unknown]
  - Diarrhoea [Unknown]
  - Blood calcium decreased [Unknown]
  - Feeling hot [Unknown]
  - Bone decalcification [Unknown]
  - Urinary tract infection [Unknown]
  - Nocturia [Unknown]
  - Needle issue [Unknown]
  - Balance disorder [Unknown]
  - Renal mass [Unknown]
  - Skin discolouration [Unknown]
  - Flushing [Unknown]
  - Product quality issue [Unknown]
  - Intestinal haemorrhage [Unknown]
  - Metastases to lung [Unknown]
  - Pain in extremity [Unknown]
  - Chromosome analysis abnormal [Unknown]
  - Blood pressure systolic increased [Unknown]
  - Injection site mass [Unknown]
  - Abdominal pain [Unknown]
  - Drug administration error [Unknown]
  - Gastrointestinal neoplasm [Unknown]
  - Metastases to gastrointestinal tract [Unknown]
  - Renal impairment [Not Recovered/Not Resolved]
  - Haemoglobin decreased [Unknown]
  - Tremor [Unknown]
  - Paraesthesia [Unknown]
  - Mouth ulceration [Unknown]
  - Faeces pale [Unknown]
  - Joint swelling [Unknown]
  - Nausea [Unknown]
  - Injection site reaction [Unknown]
  - Visual impairment [Unknown]
  - Metastases to pancreas [Unknown]
  - Metastases to abdominal cavity [Unknown]
  - Dizziness [Unknown]
  - Chills [Unknown]
  - Depressed mood [Unknown]
  - Blood iron decreased [Unknown]
  - Mouth swelling [Unknown]
  - Hypertension [Unknown]
  - Heart rate decreased [Not Recovered/Not Resolved]
  - Inappropriate schedule of drug administration [Unknown]
  - Haematochezia [Unknown]
  - Haemorrhoids [Unknown]
  - Anorectal discomfort [Unknown]
  - Hypersomnia [Unknown]
  - Metastases to oesophagus [Unknown]
  - Metastases to peritoneum [Not Recovered/Not Resolved]
  - Metastases to liver [Unknown]
  - Pollakiuria [Unknown]
  - Ocular hyperaemia [Unknown]
  - Hyperphagia [Unknown]
  - Hypercholesterolaemia [Unknown]
  - Varicose vein [Unknown]
  - Headache [Unknown]
  - Injection site pain [Recovering/Resolving]
  - Underdose [Unknown]
  - Abdominal pain lower [Unknown]
  - Dehydration [Unknown]
  - Lung neoplasm [Unknown]
  - Asthenia [Not Recovered/Not Resolved]
  - Metastases to lymph nodes [Unknown]
  - Proctalgia [Not Recovered/Not Resolved]
  - Blood magnesium decreased [Unknown]
  - Oral administration complication [Unknown]
  - Stomach mass [Unknown]
  - Anaemia [Not Recovered/Not Resolved]
  - Faeces discoloured [Unknown]
  - Abdominal pain upper [Unknown]
  - Dyspepsia [Unknown]
  - Incorrect product storage [Unknown]
  - Blood pressure increased [Not Recovered/Not Resolved]
  - Flatulence [Unknown]
  - Malignant neoplasm progression [Unknown]
  - Anal incontinence [Unknown]
  - Hot flush [Unknown]
  - Weight decreased [Unknown]
  - Decreased appetite [Unknown]
  - Back pain [Unknown]
  - Insomnia [Unknown]
  - Dysstasia [Unknown]
  - Application site bruise [Unknown]
  - Pain [Not Recovered/Not Resolved]
  - Malaise [Unknown]
  - Burning sensation [Unknown]
  - Depression [Unknown]
  - Mouth haemorrhage [Unknown]
  - Blood glucose increased [Unknown]

NARRATIVE: CASE EVENT DATE: 20141120
